FAERS Safety Report 8727690 (Version 3)
Quarter: 2013Q2

REPORT INFORMATION
  Report Type: Spontaneous
  Country: US (occurrence: US)
  Receive Date: 20120816
  Receipt Date: 20130419
  Transmission Date: 20140414
  Serious: Yes (Hospitalization)
  Sender: FDA-Public Use
  Company Number: US-B.I. PHARMACEUTICALS,INC./RIDGEFIELD-2012-BP-18727BP

PATIENT
  Age: 50 Year
  Sex: Male
  Weight: 113.4 kg

DRUGS (10)
  1. PRADAXA [Suspect]
     Indication: ANTICOAGULANT THERAPY
     Dosage: 300 MG
     Dates: start: 20110217, end: 20110610
  2. PRADAXA [Suspect]
     Indication: ATRIAL FIBRILLATION
  3. TIKOSYN [Concomitant]
     Dosage: 500 MCG
     Dates: start: 2005
  4. METFORMIN [Concomitant]
     Dosage: 1000 MG
     Dates: start: 2005
  5. GLIMEPIRIDE [Concomitant]
     Dosage: 2 MG
     Dates: start: 2005
  6. SPIRONOLACTONE [Concomitant]
     Dosage: 25 MG
     Dates: start: 2005
  7. COREG [Concomitant]
     Dosage: 50 MG
  8. LISINOPRIL [Concomitant]
     Dosage: 20 MG
  9. FLAGYL [Concomitant]
     Dosage: 1500 MG
  10. BUMEX [Concomitant]

REACTIONS (1)
  - Gastrointestinal haemorrhage [Unknown]
